FAERS Safety Report 7343360-4 (Version None)
Quarter: 2011Q1

REPORT INFORMATION
  Report Type: 
  Country: None (occurrence: None)
  Receive Date: 20110228
  Receipt Date: 20110223
  Transmission Date: 20110831
  Serious: Yes (Other)
  Sender: FDA-Public Use
  Company Number: 2011SP002066

PATIENT
  Age: 43 Year
  Sex: Male
  Weight: 79 kg

DRUGS (9)
  1. ESLAX (ROCURONIUM BROMIDE /01245702/) [Suspect]
     Indication: NEUROMUSCULAR BLOCKADE
     Dosage: 40 MG; IV
     Route: 042
     Dates: start: 20100708, end: 20100708
  2. PENTAZOCINE (PENTAZOCINE) [Suspect]
     Indication: ANAESTHETIC PREMEDICATION
     Dosage: 15 MG; IV
     Route: 042
     Dates: start: 20100708, end: 20100708
  3. ALLOPURINOL [Suspect]
     Indication: GOUT
     Dosage: 100 MG; PO
     Route: 048
     Dates: end: 20100707
  4. PROPOFOL [Suspect]
     Indication: GENERAL ANAESTHESIA
     Dosage: 200 MG; IV
     Route: 042
     Dates: start: 20100708, end: 20100708
  5. SEVOFLURANE [Suspect]
     Indication: GENERAL ANAESTHESIA
     Dosage: 4 PCT; INH
     Route: 055
     Dates: start: 20100708, end: 20100708
  6. NITROUS OXIDE W/ OXYGEN [Suspect]
     Indication: GENERAL ANAESTHESIA
     Dosage: 120 L;QH;INH
     Route: 055
     Dates: start: 20100708, end: 20100708
  7. ESTAZOLAM [Suspect]
     Indication: DEPRESSION
     Dosage: 2 MG; PO
     Route: 048
  8. LUVOX [Suspect]
     Indication: DEPRESSION
     Dosage: 50 MG; PO
     Route: 048
  9. ATROPINE SULFATE [Suspect]
     Indication: ANAESTHETIC PREMEDICATION
     Dosage: 0.5 MG;IV
     Route: 042
     Dates: start: 20100708, end: 20100708

REACTIONS (2)
  - POST PROCEDURAL COMPLICATION [None]
  - RHABDOMYOLYSIS [None]
